FAERS Safety Report 13433391 (Version 1)
Quarter: 2017Q2

REPORT INFORMATION
  Report Type: Spontaneous
  Country: US (occurrence: US)
  Receive Date: 20170412
  Receipt Date: 20170412
  Transmission Date: 20170830
  Serious: No
  Sender: FDA-Public Use
  Company Number: US-AMNEAL PHARMACEUTICALS-2017AMN00158

PATIENT
  Age: 77 Year
  Sex: Male
  Weight: 81.18 kg

DRUGS (5)
  1. DICLOFENAC SODIUM. [Suspect]
     Active Substance: DICLOFENAC SODIUM
     Indication: MUSCULOSKELETAL PAIN
     Dosage: 4 G, 4X/DAY (TO THE AFFECTED AREA)
     Route: 061
     Dates: start: 20170210, end: 20170212
  2. CADUET [Concomitant]
     Active Substance: AMLODIPINE BESYLATE\ATORVASTATIN CALCIUM
  3. ELIQUIS [Concomitant]
     Active Substance: APIXABAN
  4. DICLOFENAC SODIUM. [Suspect]
     Active Substance: DICLOFENAC SODIUM
     Indication: ARTHRALGIA
  5. DIOVAN [Concomitant]
     Active Substance: VALSARTAN

REACTIONS (1)
  - Application site vesicles [Not Recovered/Not Resolved]

NARRATIVE: CASE EVENT DATE: 20170210
